FAERS Safety Report 15579683 (Version 1)
Quarter: 2018Q4

REPORT INFORMATION
  Report Type: Spontaneous
  Country: US (occurrence: US)
  Receive Date: 20181102
  Receipt Date: 20181102
  Transmission Date: 20190205
  Serious: No
  Sender: FDA-Public Use
  Company Number: US-TARO-2018TAR00501

PATIENT
  Age: 79 Year
  Sex: Male
  Weight: 113.38 kg

DRUGS (1)
  1. TRIAMCINOLONE ACETONIDE DENTAL PASTE USP 0.1% [Suspect]
     Active Substance: TRIAMCINOLONE ACETONIDE
     Dosage: ^A DAB TO SORES IN MOUTH^, UP TO 3X/DAY AS NEEDED
     Dates: start: 2010

REACTIONS (2)
  - Speech disorder [Recovered/Resolved]
  - Product packaging issue [Not Recovered/Not Resolved]

NARRATIVE: CASE EVENT DATE: 20180629
